FAERS Safety Report 19088937 (Version 1)
Quarter: 2021Q2

REPORT INFORMATION
  Report Type: Spontaneous
  Country: IT (occurrence: IT)
  Receive Date: 20210403
  Receipt Date: 20210403
  Transmission Date: 20210717
  Serious: Yes (Hospitalization, Other)
  Sender: FDA-Public Use
  Company Number: IT-ROCHE-2797071

PATIENT
  Age: 63 Year
  Sex: Male

DRUGS (1)
  1. OMALIZUMAB. [Suspect]
     Active Substance: OMALIZUMAB
     Indication: ASTHMA
     Route: 065

REACTIONS (4)
  - Alcoholic pancreatitis [Unknown]
  - Pancreatic carcinoma [Unknown]
  - White blood cell count increased [Recovered/Resolved]
  - Lymphadenopathy [Recovered/Resolved]
